FAERS Safety Report 12416503 (Version 1)
Quarter: 2016Q2

REPORT INFORMATION
  Report Type: Spontaneous
  Country: GB (occurrence: GB)
  Receive Date: 20160530
  Receipt Date: 20160530
  Transmission Date: 20160815
  Serious: Yes (Other)
  Sender: FDA-Public Use
  Company Number: GB-JNJFOC-20130111286

PATIENT
  Age: 29 Year
  Sex: Female

DRUGS (5)
  1. ETORICOXIB [Concomitant]
     Active Substance: ETORICOXIB
     Indication: PAIN
     Route: 065
     Dates: start: 2011
  2. TRAMADOL. [Concomitant]
     Active Substance: TRAMADOL
     Indication: PAIN
     Route: 065
     Dates: start: 2011
  3. GABAPENTIN. [Concomitant]
     Active Substance: GABAPENTIN
     Indication: PAIN
     Route: 065
     Dates: start: 20121126
  4. SIMPONI [Suspect]
     Active Substance: GOLIMUMAB
     Indication: ANKYLOSING SPONDYLITIS
     Route: 058
  5. SIMPONI [Suspect]
     Active Substance: GOLIMUMAB
     Indication: ANKYLOSING SPONDYLITIS
     Route: 058
     Dates: start: 20121223

REACTIONS (2)
  - Lower respiratory tract infection [Unknown]
  - Otitis media [Unknown]

NARRATIVE: CASE EVENT DATE: 20130110
